FAERS Safety Report 15223537 (Version 1)
Quarter: 2018Q3

REPORT INFORMATION
  Report Type: Spontaneous
  Country: DE (occurrence: DE)
  Receive Date: 20180731
  Receipt Date: 20180731
  Transmission Date: 20181010
  Serious: Yes (Other)
  Sender: FDA-Public Use
  Company Number: DE-IMPAX LABORATORIES, INC-2018-IPXL-02512

PATIENT
  Age: 74 Year
  Sex: Male
  Weight: 81 kg

DRUGS (10)
  1. TAMSULOSIN HYDROCHLORIDE. [Suspect]
     Active Substance: TAMSULOSIN HYDROCHLORIDE
     Indication: BENIGN PROSTATIC HYPERPLASIA
     Dosage: UNK
     Route: 065
  2. REMIFENTANIL [Suspect]
     Active Substance: REMIFENTANIL
     Indication: ANAESTHESIA
     Dosage: 0.35 ?G/KG/MIN, INFUSION
     Route: 050
  3. REMIFENTANIL [Suspect]
     Active Substance: REMIFENTANIL
     Dosage: 0.15 ?G/KG/MIN, INFUSION
     Route: 050
  4. ADRENACLICK [Suspect]
     Active Substance: EPINEPHRINE
     Indication: BLOOD PRESSURE DECREASED
     Dosage: 5 ?G, 3 ONLY
     Route: 042
  5. ROCURONIUM [Interacting]
     Active Substance: ROCURONIUM BROMIDE
     Indication: ANAESTHESIA
     Dosage: 50 MG, UNK
     Route: 042
  6. NITROUS OXIDE W/OXYGEN [Concomitant]
     Active Substance: NITROUS OXIDE\OXYGEN
     Indication: ANAESTHESIA
     Dosage: UNK
     Route: 055
  7. DIKALIUMKLORAZEPAT [Concomitant]
     Indication: ANAESTHESIA
     Dosage: UNK
     Route: 048
  8. PROPOFOL. [Concomitant]
     Active Substance: PROPOFOL
     Indication: ANAESTHESIA
     Dosage: 1.5 MG/KG, UNK
     Route: 065
  9. FENTANYL. [Concomitant]
     Active Substance: FENTANYL
     Indication: ANAESTHESIA
     Dosage: 0.2 ?G/KG, UNK
     Route: 065
  10. ATROPINE. [Concomitant]
     Active Substance: ATROPINE
     Indication: ANAESTHESIA
     Dosage: 0.8 MG, UNK
     Route: 065

REACTIONS (4)
  - Drug interaction [Unknown]
  - Neuromuscular block prolonged [Recovering/Resolving]
  - Blood pressure decreased [Recovering/Resolving]
  - Heart rate decreased [Recovering/Resolving]
